FAERS Safety Report 11246685 (Version 1)
Quarter: 2015Q3

REPORT INFORMATION
  Report Type: Spontaneous
  Country: US (occurrence: None)
  Receive Date: 20150706
  Receipt Date: 20150706
  Transmission Date: 20151125
  Serious: Yes (Disabling)
  Sender: FDA-Public Use
  Company Number: DEP_03130_2015

PATIENT
  Age: 67 Year
  Sex: Male
  Weight: 68.04 kg

DRUGS (13)
  1. AMLODIPINE [Concomitant]
     Active Substance: AMLODIPINE BESYLATE
  2. WELLBUTRIN [Concomitant]
     Active Substance: BUPROPION HYDROCHLORIDE
  3. GRALISE [Suspect]
     Active Substance: GABAPENTIN
     Indication: MIGRAINE
     Dosage: 600 MG QD, WITH DINNER ORAL
     Route: 048
     Dates: start: 201503, end: 20150627
  4. ALFUZOSIN [Concomitant]
     Active Substance: ALFUZOSIN
  5. GRALISE [Suspect]
     Active Substance: GABAPENTIN
     Indication: OFF LABEL USE
     Dosage: 600 MG QD, WITH DINNER ORAL
     Route: 048
     Dates: start: 201503, end: 20150627
  6. KLONOPIN [Concomitant]
     Active Substance: CLONAZEPAM
  7. FINASTERIDE. [Concomitant]
     Active Substance: FINASTERIDE
  8. BENAZEPRIL [Concomitant]
     Active Substance: BENAZEPRIL HYDROCHLORIDE
  9. CELEXA [Concomitant]
     Active Substance: CITALOPRAM HYDROBROMIDE
  10. ABILIFY [Concomitant]
     Active Substance: ARIPIPRAZOLE
  11. LABETALOL [Concomitant]
     Active Substance: LABETALOL\LABETALOL HYDROCHLORIDE
  12. CARBIDOPA/LEVODOPA [Concomitant]
     Active Substance: CARBIDOPA\LEVODOPA
  13. ARTANE [Concomitant]
     Active Substance: TRIHEXYPHENIDYL HYDROCHLORIDE

REACTIONS (4)
  - Mobility decreased [None]
  - Drug ineffective [None]
  - Dizziness [None]
  - Fall [None]

NARRATIVE: CASE EVENT DATE: 201503
